FAERS Safety Report 5008603-0 (Version None)
Quarter: 2006Q2

REPORT INFORMATION
  Report Type: 
  Country: None (occurrence: None)
  Receive Date: 20060523
  Receipt Date: 20060519
  Transmission Date: 20061013
  Serious: Yes (Hospitalization)
  Sender: FDA-Public Use
  Company Number: JP-ROCHE-448598

PATIENT
  Age: 61 Year
  Sex: Male

DRUGS (4)
  1. PANALDINE [Suspect]
     Indication: MYOCARDIAL INFARCTION
     Dosage: INDICATION ALSO REPORTED AS ATHEROSCLEROSIS OBLITERANS
     Route: 048
     Dates: end: 20060510
  2. DORNER [Concomitant]
     Route: 048
  3. RIBALL [Concomitant]
     Route: 048
  4. DIOVAN [Concomitant]
     Route: 048

REACTIONS (4)
  - ARTHRALGIA [None]
  - HEADACHE [None]
  - INTERSTITIAL LUNG DISEASE [None]
  - PYREXIA [None]
